FAERS Safety Report 15985491 (Version 1)
Quarter: 2019Q1

REPORT INFORMATION
  Report Type: Spontaneous
  Country: IN (occurrence: IN)
  Receive Date: 20190220
  Receipt Date: 20190220
  Transmission Date: 20190418
  Serious: Yes (Other)
  Sender: FDA-Public Use
  Company Number: IN-B.I. PHARMACEUTICALS,INC./RIDGEFIELD-2019-BI-006976

PATIENT
  Age: 62 Year
  Sex: Female

DRUGS (3)
  1. GILOTRIF [Suspect]
     Active Substance: AFATINIB
     Indication: EGFR GENE MUTATION
  2. GILOTRIF [Suspect]
     Active Substance: AFATINIB
     Indication: EGFR GENE MUTATION
     Route: 065
  3. GILOTRIF [Suspect]
     Active Substance: AFATINIB
     Indication: LUNG CANCER METASTATIC
     Route: 065
     Dates: start: 201507, end: 201605

REACTIONS (2)
  - Diarrhoea [Unknown]
  - Malignant neoplasm progression [Unknown]
